FAERS Safety Report 6545038-3 (Version None)
Quarter: 2010Q1

REPORT INFORMATION
  Report Type: 
  Country: None (occurrence: None)
  Receive Date: 20100121
  Receipt Date: 20100115
  Transmission Date: 20100710
  Serious: Yes (Other)
  Sender: FDA-Public Use
  Company Number: B0620150A

PATIENT
  Sex: Male

DRUGS (3)
  1. LAMICTAL [Suspect]
     Indication: EPILEPSY
     Route: 048
     Dates: start: 20090514, end: 20091209
  2. MYSTAN [Suspect]
     Indication: EPILEPSY
     Dosage: 6.5MG TWICE PER DAY
     Route: 048
     Dates: start: 20061109
  3. MAGNESIUM OXIDE [Suspect]
     Indication: CONSTIPATION
     Dosage: .2G THREE TIMES PER DAY
     Route: 048
     Dates: start: 20091001

REACTIONS (6)
  - ACTIVATED PARTIAL THROMBOPLASTIN TIME PROLONGED [None]
  - HEPATIC FUNCTION ABNORMAL [None]
  - PETECHIAE [None]
  - PLATELET COUNT DECREASED [None]
  - PNEUMONIA [None]
  - SOMNOLENCE [None]
